FAERS Safety Report 14068305 (Version 3)
Quarter: 2017Q4

REPORT INFORMATION
  Report Type: Spontaneous
  Country: JP (occurrence: JP)
  Receive Date: 20171010
  Receipt Date: 20171206
  Transmission Date: 20180321
  Serious: Yes (Hospitalization, Other)
  Sender: FDA-Public Use
  Company Number: JP-ROCHE-2003853

PATIENT
  Age: 73 Year
  Sex: Female
  Weight: 52.6 kg

DRUGS (8)
  1. LOSARTAN K [Concomitant]
     Active Substance: LOSARTAN POTASSIUM
     Indication: HYPERTENSION
     Route: 048
  2. TRAZENTA [Concomitant]
     Active Substance: LINAGLIPTIN
     Indication: DIABETES MELLITUS
     Route: 048
  3. LUCENTIS [Suspect]
     Active Substance: RANIBIZUMAB
     Indication: DIABETIC RETINAL OEDEMA
     Route: 031
     Dates: start: 20170831, end: 20170831
  4. BENOXIL (JAPAN) [Concomitant]
     Indication: ANAESTHESIA PROCEDURE
     Route: 047
     Dates: start: 20170831, end: 20170831
  5. VEGAMOX [Concomitant]
     Active Substance: MOXIFLOXACIN HYDROCHLORIDE
     Indication: INFECTION PROPHYLAXIS
     Dosage: 1 DROP Q.S.
     Route: 047
     Dates: start: 20170831, end: 20170831
  6. HUMALOG MIX [Concomitant]
     Active Substance: INSULIN LISPRO
     Indication: DIABETES MELLITUS
     Dosage: 26 IU IN MORNING, 16 IU IN EVENING
     Route: 058
     Dates: end: 20170907
  7. ISODINE (JAPAN) [Concomitant]
     Indication: INFECTION PROPHYLAXIS
     Dosage: U
     Route: 003
     Dates: start: 20170831, end: 20170831
  8. MYDRIN-P [Concomitant]
     Active Substance: PHENYLEPHRINE HYDROCHLORIDE\TROPICAMIDE
     Indication: MYDRIASIS
     Dosage: 1 DROP Q.S.
     Route: 047
     Dates: start: 20170831, end: 20170831

REACTIONS (4)
  - Vision blurred [Recovering/Resolving]
  - Paralysis [Unknown]
  - Ischaemic cerebral infarction [Recovering/Resolving]
  - Dizziness [Unknown]

NARRATIVE: CASE EVENT DATE: 20170916
